FAERS Safety Report 11595371 (Version 1)
Quarter: 2015Q4

REPORT INFORMATION
  Report Type: Spontaneous
  Country: BR (occurrence: BR)
  Receive Date: 20151006
  Receipt Date: 20151006
  Transmission Date: 20160304
  Serious: Yes (Hospitalization)
  Sender: FDA-Public Use
  Company Number: BR-ROCHE-1641263

PATIENT
  Sex: Female
  Weight: 54 kg

DRUGS (5)
  1. RIVOTRIL [Suspect]
     Active Substance: CLONAZEPAM
     Indication: ANXIETY
  2. OTOSYNALAR [Suspect]
     Active Substance: FLUOCINOLONE ACETONIDE
     Indication: EAR INFECTION
     Route: 065
     Dates: start: 201509
  3. QUETROS [Concomitant]
     Active Substance: QUETIAPINE
     Indication: SLEEP DISORDER
     Dosage: 1 TABLET
     Route: 065
  4. RIVOTRIL [Suspect]
     Active Substance: CLONAZEPAM
     Indication: SLEEP DISORDER
     Route: 048
  5. RIVOTRIL [Suspect]
     Active Substance: CLONAZEPAM
     Indication: RESTLESS LEGS SYNDROME

REACTIONS (3)
  - Ear infection [Not Recovered/Not Resolved]
  - Drug ineffective [Unknown]
  - Benign neoplasm of thyroid gland [Unknown]
